FAERS Safety Report 5832723-1 (Version None)
Quarter: 2008Q3

REPORT INFORMATION
  Report Type: 
  Country: None (occurrence: None)
  Receive Date: 20080804
  Receipt Date: 20080722
  Transmission Date: 20090109
  Serious: Yes (Hospitalization)
  Sender: FDA-Public Use
  Company Number: PHHO1999DE04504

PATIENT
  Sex: Female

DRUGS (3)
  1. RAD 666 RAD+ [Suspect]
     Dosage: 0.75 MG, BID
     Route: 048
     Dates: start: 19990712
  2. NEORAL [Suspect]
     Route: 048
     Dates: start: 19990711
  3. PREDNISOLONE [Suspect]
     Route: 048
     Dates: start: 19990711

REACTIONS (3)
  - BACTERIAL INFECTION [None]
  - INFECTION [None]
  - LYMPHOCELE [None]
